FAERS Safety Report 5150279-6 (Version None)
Quarter: 2006Q4

REPORT INFORMATION
  Report Type: 
  Country: None (occurrence: None)
  Receive Date: 20061110
  Receipt Date: 20061110
  Transmission Date: 20070319
  Serious: Yes (Other)
  Sender: FDA-Public Use
  Company Number: None

PATIENT
  Age: 45 Year
  Sex: Female
  Weight: 77.1115 kg

DRUGS (18)
  1. EQUATE EXTRA STRENGTH PAIN RELIEVER [Suspect]
     Indication: ARTHRITIS
     Dosage: 500 MG TABS (SEE IMAGE)
     Dates: start: 20060720
  2. EQUATE EXTRA STRENGTH PAIN RELIEVER [Suspect]
     Indication: ARTHRITIS
     Dosage: 500 MG TABS (SEE IMAGE)
     Dates: start: 20060801
  3. EQUATE EXTRA STRENGTH PAIN RELIEVER [Suspect]
     Indication: ARTHRITIS
     Dosage: 500 MG TABS (SEE IMAGE)
     Dates: start: 20060825
  4. EQUATE EXTRA STRENGTH PAIN RELIEVER [Suspect]
     Indication: ARTHRITIS
     Dosage: 500 MG TABS (SEE IMAGE)
     Dates: start: 20060826
  5. EQUATE EXTRA STRENGTH PAIN RELIEVER [Suspect]
     Indication: ARTHRITIS
     Dosage: 500 MG TABS (SEE IMAGE)
     Dates: start: 20060908
  6. EQUATE EXTRA STRENGTH PAIN RELIEVER [Suspect]
     Indication: ARTHRITIS
     Dosage: 500 MG TABS (SEE IMAGE)
     Dates: start: 20060911
  7. EQUATE EXTRA STRENGTH PAIN RELIEVER [Suspect]
     Indication: ARTHRITIS
     Dosage: 500 MG TABS (SEE IMAGE)
     Dates: start: 20060912
  8. EQUATE EXTRA STRENGTH PAIN RELIEVER [Suspect]
     Indication: ARTHRITIS
     Dosage: 500 MG TABS (SEE IMAGE)
     Dates: start: 20060914
  9. EQUATE EXTRA STRENGTH PAIN RELIEVER [Suspect]
     Indication: ARTHRITIS
     Dosage: 500 MG TABS (SEE IMAGE)
     Dates: start: 20060916
  10. EQUATE EXTRA STRENGTH PAIN RELIEVER [Suspect]
     Indication: ARTHRITIS
     Dosage: 500 MG TABS (SEE IMAGE)
     Dates: start: 20061001
  11. EQUATE EXTRA STRENGTH PAIN RELIEVER [Suspect]
     Indication: ARTHRITIS
     Dosage: 500 MG TABS (SEE IMAGE)
     Dates: start: 20061003
  12. EQUATE EXTRA STRENGTH PAIN RELIEVER [Suspect]
     Indication: ARTHRITIS
     Dosage: 500 MG TABS (SEE IMAGE)
     Dates: start: 20061004
  13. EQUATE EXTRA STRENGTH PAIN RELIEVER [Suspect]
     Indication: ARTHRITIS
     Dosage: 500 MG TABS (SEE IMAGE)
     Dates: start: 20061005
  14. EQUATE EXTRA STRENGTH PAIN RELIEVER [Suspect]
     Indication: ARTHRITIS
     Dosage: 500 MG TABS (SEE IMAGE)
     Dates: start: 20061006
  15. EQUATE EXTRA STRENGTH PAIN RELIEVER [Suspect]
     Indication: ARTHRITIS
     Dosage: 500 MG TABS (SEE IMAGE)
     Dates: start: 20061007
  16. EQUATE EXTRA STRENGTH PAIN RELIEVER [Suspect]
     Indication: ARTHRITIS
     Dosage: 500 MG TABS (SEE IMAGE)
     Dates: start: 20061012
  17. EQUATE EXTRA STRENGTH PAIN RELIEVER [Suspect]
     Indication: ARTHRITIS
     Dosage: 500 MG TABS (SEE IMAGE)
     Dates: start: 20061020
  18. EQUATE EXTRA STRENGTH PAIN RELIEVER [Suspect]
     Indication: ARTHRITIS
     Dosage: 500 MG TABS (SEE IMAGE)
     Dates: start: 20061021

REACTIONS (1)
  - COUGH [None]
